FAERS Safety Report 14372601 (Version 1)
Quarter: 2018Q1

REPORT INFORMATION
  Report Type: Spontaneous
  Country: US (occurrence: US)
  Receive Date: 20180110
  Receipt Date: 20180110
  Transmission Date: 20180509
  Serious: Yes (Other)
  Sender: FDA-Public Use
  Company Number: US-PFIZER INC-2018010943

PATIENT
  Age: 63 Year
  Sex: Female

DRUGS (3)
  1. NEXIUM [Suspect]
     Active Substance: ESOMEPRAZOLE MAGNESIUM
     Dosage: UNK, NUMEROUS OCCASIONS
     Route: 048
     Dates: start: 2000, end: 2013
  2. PROTONIX [Suspect]
     Active Substance: PANTOPRAZOLE SODIUM
     Dosage: UNK, NUMEROUS OCCASIONS
     Route: 048
     Dates: start: 2000, end: 2013
  3. PRILOSEC [Suspect]
     Active Substance: OMEPRAZOLE MAGNESIUM
     Dosage: UNK, NUMEROUS OCCASIONS
     Route: 048
     Dates: start: 2000, end: 2013

REACTIONS (1)
  - Chronic kidney disease [Unknown]
